FAERS Safety Report 7134327-X (Version None)
Quarter: 2010Q4

REPORT INFORMATION
  Report Type: 
  Country: None (occurrence: None)
  Receive Date: 20101203
  Receipt Date: 20101124
  Transmission Date: 20110411
  Serious: Yes (Hospitalization)
  Sender: FDA-Public Use
  Company Number: DE-ASTRAZENECA-2010SE56039

PATIENT
  Age: 54 Year
  Sex: Male
  Weight: 78 kg

DRUGS (12)
  1. RAMIPRIL [Suspect]
     Indication: HYPERTENSION
     Route: 048
     Dates: start: 19900101
  2. BISOPROLOL [Suspect]
     Indication: CORONARY ARTERY DISEASE
     Route: 048
     Dates: start: 19900101
  3. FURORESE [Suspect]
     Indication: RENAL IMPAIRMENT
     Route: 048
     Dates: start: 20080301, end: 20080821
  4. HYDROCHLOROTHIAZIDE [Suspect]
     Indication: HYPERTENSION
     Route: 048
     Dates: start: 20080301, end: 20080821
  5. PANTOZOL [Concomitant]
     Indication: PROPHYLAXIS AGAINST GASTROINTESTINAL ULCER
     Route: 048
     Dates: start: 20070401
  6. PREGABALIN [Concomitant]
     Indication: POLYNEUROPATHY ALCOHOLIC
     Route: 048
  7. NEURONTIN [Concomitant]
     Indication: POLYNEUROPATHY ALCOHOLIC
     Route: 048
  8. SIMVASTATIN [Concomitant]
     Indication: CORONARY ARTERY DISEASE
     Route: 048
     Dates: start: 19900101
  9. SIFROL [Concomitant]
     Indication: POLYNEUROPATHY ALCOHOLIC
     Route: 048
  10. FALITHROM ^HEXAL^ [Concomitant]
     Indication: PULMONARY EMBOLISM
     Dosage: 3 MG; ZIEL-INR 2-3
     Route: 048
     Dates: start: 20070401
  11. BEROTEC [Concomitant]
     Indication: CHRONIC OBSTRUCTIVE PULMONARY DISEASE
     Route: 055
  12. SPIRIVA [Concomitant]
     Indication: CHRONIC OBSTRUCTIVE PULMONARY DISEASE
     Route: 055

REACTIONS (1)
  - DEHYDRATION [None]
